FAERS Safety Report 4303813-X (Version None)
Quarter: 2004Q1

REPORT INFORMATION
  Report Type: 
  Country: None (occurrence: None)
  Receive Date: 20040224
  Receipt Date: 20040205
  Transmission Date: 20041129
  Serious: Yes (Hospitalization, Other)
  Sender: FDA-Public Use
  Company Number: 7434

PATIENT
  Age: 39 Year
  Sex: Male

DRUGS (15)
  1. DURAMORPH PF [Suspect]
     Indication: ANALGESIC EFFECT
     Dosage: 200 MG DAILY UNK
  2. DURAMORPH PF [Suspect]
     Indication: ANALGESIC EFFECT
     Dosage: 75 MG DAILY IT
  3. DURAMORPH PF [Suspect]
     Indication: ANALGESIC EFFECT
     Dosage: 900 MG DAILY IT
  4. DURAMORPH PF [Suspect]
     Indication: ANALGESIC EFFECT
     Dosage: 1150 MG DAILY IT
  5. DURAMORPH PF [Suspect]
     Indication: ANALGESIC EFFECT
     Dosage: 19 MG DAILY IT
  6. DURAMORPH PF [Suspect]
     Indication: ANALGESIC EFFECT
     Dosage: 17 MG DAILY IT
  7. HYDROMORPHONE [Concomitant]
  8. MIDAZOLAM HCL [Concomitant]
  9. PHENYTOIN [Concomitant]
  10. DEXAMETHASONE [Concomitant]
  11. KETAMINE HCL [Concomitant]
  12. FENTANYL [Concomitant]
  13. CLONIDINE [Concomitant]
  14. BUPIVACAINE [Concomitant]
  15. TETRACAINE POLYGYL STERILE OPHTHALMIC SOLUTION [Concomitant]

REACTIONS (2)
  - HYPERAESTHESIA [None]
  - METASTASES TO SPINE [None]
